FAERS Safety Report 4550562-9 (Version None)
Quarter: 2004Q4

REPORT INFORMATION
  Report Type: 
  Country: None (occurrence: None)
  Receive Date: 20041227
  Receipt Date: 20041118
  Transmission Date: 20050328
  Serious: No
  Sender: FDA-Public Use
  Company Number: 04P-163-0281136-00

PATIENT
  Age: 80 Year
  Sex: Female
  Weight: 47.1741 kg

DRUGS (9)
  1. HUMIRA [Suspect]
     Indication: RHEUMATOID ARTHRITIS
     Dosage: 40 MG, 1 IN 2 WK, SUBCUTANEOUS
     Route: 058
     Dates: start: 20030101, end: 20031101
  2. HUMIRA [Suspect]
     Indication: RHEUMATOID ARTHRITIS
     Dosage: 40 MG, 1 IN 2 WK, SUBCUTANEOUS
     Route: 058
     Dates: start: 20040101
  3. LEABETALOL [Concomitant]
  4. NIFETIAC [Concomitant]
  5. FOLIC ACID [Concomitant]
  6. CLOPIDOGREL BISULFATE [Concomitant]
  7. PREDNISONE [Concomitant]
  8. LEVOTHYROXINE SODIUM [Concomitant]
  9. FLU VACCINE [Concomitant]

REACTIONS (1)
  - NASOPHARYNGITIS [None]
